FAERS Safety Report 17855547 (Version 1)
Quarter: 2020Q2

REPORT INFORMATION
  Report Type: Report from Study
  Country: CO (occurrence: CO)
  Receive Date: 20200603
  Receipt Date: 20200603
  Transmission Date: 20200714
  Serious: Yes (Other)
  Sender: FDA-Public Use
  Company Number: NVSC2019CO052290

PATIENT
  Age: 73 Year
  Sex: Female
  Weight: 70 kg

DRUGS (7)
  1. KISQALI [Suspect]
     Active Substance: RIBOCICLIB
     Dosage: 600 MG, QD, ONCE DAILY (3 TABLETS OF 200 MG AT NIGHT)
     Route: 048
     Dates: start: 20200102
  2. KISQALI [Suspect]
     Active Substance: RIBOCICLIB
     Indication: BREAST CANCER METASTATIC
     Dosage: 600 MG, QD, ONCE DAILY (3 TABLETS OF 200 MG AT NIGHT)
     Route: 048
     Dates: start: 20190620
  3. FEMARA [Suspect]
     Active Substance: LETROZOLE
     Indication: BREAST CANCER
     Dosage: 2.5 MG, QD, ONCE DAILY (AT NIGHT)
     Route: 048
     Dates: start: 201906
  4. FUROSEMIDE. [Suspect]
     Active Substance: FUROSEMIDE
     Indication: HYPERTENSION
     Dosage: 4 YEARS AGO, QD
     Route: 048
  5. FEMARA [Suspect]
     Active Substance: LETROZOLE
     Dosage: 2.5 MG, QD, ONCE DAILY (AT NIGHT)
     Route: 048
     Dates: start: 20200102
  6. LOSARTAN POTASSIUM. [Suspect]
     Active Substance: LOSARTAN POTASSIUM
     Indication: HYPERTENSION
     Dosage: 50 MG, BID, 20 YEARS AGO, ONE IN THE MORNING AND ONE IN THE AFTER NOON
     Route: 048
  7. AMLODIPINE [Suspect]
     Active Substance: AMLODIPINE BESYLATE
     Indication: HYPERTENSION
     Dosage: 20 YEARS AGO, QD
     Route: 048

REACTIONS (6)
  - Cough [Unknown]
  - Metastases to lung [Unknown]
  - Rash [Recovered/Resolved]
  - Sunburn [Recovered/Resolved]
  - Hypersensitivity [Unknown]
  - Skin exfoliation [Unknown]

NARRATIVE: CASE EVENT DATE: 201906
